FAERS Safety Report 19086618 (Version 1)
Quarter: 2021Q2

REPORT INFORMATION
  Report Type: Spontaneous
  Country: US (occurrence: US)
  Receive Date: 20210402
  Receipt Date: 20210402
  Transmission Date: 20210717
  Serious: No
  Sender: FDA-Public Use
  Company Number: US-AMGEN-USASP2021048569

PATIENT
  Sex: Female

DRUGS (11)
  1. PRAMIPEXOLE DIHYDROCHLORIDE. [Concomitant]
     Active Substance: PRAMIPEXOLE DIHYDROCHLORIDE
  2. PAXIL [PIROXICAM] [Concomitant]
     Active Substance: PIROXICAM
  3. METHOTREXATE. [Concomitant]
     Active Substance: METHOTREXATE
  4. WARFARIN SODIUM. [Concomitant]
     Active Substance: WARFARIN SODIUM
  5. PREVA [Concomitant]
  6. COZAAR [Concomitant]
     Active Substance: LOSARTAN POTASSIUM
  7. SANCTURA [Concomitant]
     Active Substance: TROSPIUM CHLORIDE
  8. MIRAPEX [Concomitant]
     Active Substance: PRAMIPEXOLE DIHYDROCHLORIDE
  9. OTEZLA [Suspect]
     Active Substance: APREMILAST
     Indication: PSORIASIS
     Dosage: 30 MILLIGRAM, BID
     Route: 048
     Dates: start: 201607
  10. PREVACID [Concomitant]
     Active Substance: LANSOPRAZOLE
  11. GABAPENTIN. [Concomitant]
     Active Substance: GABAPENTIN

REACTIONS (1)
  - Medical procedure [Unknown]
